FAERS Safety Report 11239176 (Version 1)
Quarter: 2015Q3

REPORT INFORMATION
  Report Type: Spontaneous
  Country: US (occurrence: None)
  Receive Date: 20150701
  Receipt Date: 20150701
  Transmission Date: 20151125
  Serious: Yes (Death)
  Sender: FDA-Public Use
  Company Number: None

PATIENT
  Age: 75 Year
  Sex: Female

DRUGS (1)
  1. AFINITOR [Suspect]
     Active Substance: EVEROLIMUS
     Indication: MALIGNANT PERITONEAL NEOPLASM
     Route: 048
     Dates: start: 20140801, end: 20150315

REACTIONS (6)
  - Skin ulcer [None]
  - Oedema peripheral [None]
  - Activities of daily living impaired [None]
  - Pulmonary oedema [None]
  - Pneumonia [None]
  - Wound secretion [None]

NARRATIVE: CASE EVENT DATE: 20150619
